FAERS Safety Report 23126605 (Version 1)
Quarter: 2023Q4

REPORT INFORMATION
  Report Type: Spontaneous
  Country: CZ (occurrence: CZ)
  Receive Date: 20231030
  Receipt Date: 20231030
  Transmission Date: 20240110
  Serious: Yes (Other)
  Sender: FDA-Public Use
  Company Number: CZ-BRISTOL-MYERS SQUIBB COMPANY-2023-145776

PATIENT
  Age: 48 Year

DRUGS (7)
  1. PEMETREXED [Suspect]
     Active Substance: PEMETREXED
     Indication: Adenocarcinoma
     Dosage: UNK
     Dates: start: 20220427, end: 202303
  2. DENOSUMAB [Suspect]
     Active Substance: DENOSUMAB
     Indication: Adenocarcinoma
     Dosage: UNK
     Route: 065
     Dates: start: 20220427, end: 202303
  3. CISPLATIN [Suspect]
     Active Substance: CISPLATIN
     Indication: Adenocarcinoma
     Dosage: UNK
     Route: 065
     Dates: start: 20220427, end: 202303
  4. NIVOLUMAB [Suspect]
     Active Substance: NIVOLUMAB
     Indication: Non-small cell lung cancer
     Dosage: UNK
     Route: 065
     Dates: start: 20220427, end: 202303
  5. NIVOLUMAB [Suspect]
     Active Substance: NIVOLUMAB
     Indication: Adenocarcinoma
  6. IPILIMUMAB [Suspect]
     Active Substance: IPILIMUMAB
     Indication: Adenocarcinoma
     Dosage: UNK
     Route: 065
     Dates: start: 20220427, end: 202303
  7. IPILIMUMAB [Suspect]
     Active Substance: IPILIMUMAB
     Indication: Non-small cell lung cancer

REACTIONS (4)
  - Non-small cell lung cancer [Unknown]
  - Plasma cell myeloma [Unknown]
  - Blood creatinine increased [Unknown]
  - Anaemia [Unknown]
